FAERS Safety Report 9147424 (Version 4)
Quarter: 2013Q1

REPORT INFORMATION
  Report Type: Report from Study
  Country: BE (occurrence: BE)
  Receive Date: 20130307
  Receipt Date: 20130321
  Transmission Date: 20140127
  Serious: Yes (Hospitalization)
  Sender: FDA-Public Use
  Company Number: BE-VERTEX PHARMACEUTICALS INC.-000000000000001101

PATIENT
  Age: 68 Year
  Sex: Male
  Weight: 74 kg

DRUGS (5)
  1. VX-950 (TELAPREVIR) [Suspect]
     Indication: HEPATITIS C
     Dosage: 750 MG, TID
     Route: 048
     Dates: start: 20120112, end: 20120405
  2. PEG-INTERFERON [Suspect]
     Indication: HEPATITIS C
     Dosage: DOSAGE FORM: INJECTION
     Route: 058
     Dates: start: 20120112, end: 20120704
  3. RIBAVIRIN [Concomitant]
     Indication: HEPATITIS C
     Dosage: DOSAGE FORM: TABLET
     Route: 048
     Dates: start: 20120112, end: 20120704
  4. CARDIOASPIRIN [Concomitant]
     Dosage: DOSAGE FORM: UNSPECIFIED
     Route: 065
  5. CRESTOR [Concomitant]
     Dosage: DOSAGE FORM: UNSPECIFIED
     Route: 065

REACTIONS (3)
  - Purpura [Recovered/Resolved]
  - Pulmonary fibrosis [Recovered/Resolved]
  - Oedema peripheral [Recovered/Resolved]
